FAERS Safety Report 5584277-5 (Version None)
Quarter: 2008Q1

REPORT INFORMATION
  Report Type: 
  Country: None (occurrence: None)
  Receive Date: 20080108
  Receipt Date: 20080107
  Transmission Date: 20080703
  Serious: Yes (Death, Life-Threatening, Hospitalization)
  Sender: FDA-Public Use
  Company Number: B0497772A

PATIENT
  Age: 66 Year
  Sex: Female
  Weight: 33 kg

DRUGS (8)
  1. SEREVENT [Suspect]
     Indication: CHRONIC OBSTRUCTIVE PULMONARY DISEASE
     Dosage: 50MCG TWICE PER DAY
     Route: 055
     Dates: start: 20070820, end: 20070831
  2. UNASYN [Suspect]
     Dosage: 3G TWICE PER DAY
     Route: 042
     Dates: start: 20070831
  3. DALACIN [Suspect]
     Dosage: 600MG TWICE PER DAY
     Route: 042
     Dates: start: 20070831
  4. SPIRIVA [Concomitant]
     Indication: CHRONIC OBSTRUCTIVE PULMONARY DISEASE
     Dosage: 18MCG PER DAY
     Route: 055
     Dates: end: 20070831
  5. MUCODYNE [Concomitant]
     Indication: CHRONIC OBSTRUCTIVE PULMONARY DISEASE
     Dosage: 1500MG PER DAY
     Route: 048
     Dates: end: 20070831
  6. CLARITHROMYCIN [Concomitant]
     Route: 048
     Dates: start: 20070825
  7. LACTEC [Concomitant]
     Route: 042
     Dates: start: 20070825
  8. AMINOPHYLLINE [Concomitant]
     Route: 042
     Dates: start: 20070825

REACTIONS (11)
  - ASCITES [None]
  - BLOOD PRESSURE DECREASED [None]
  - C-REACTIVE PROTEIN INCREASED [None]
  - DEPRESSED LEVEL OF CONSCIOUSNESS [None]
  - DYSPNOEA [None]
  - HEPATIC ENZYME INCREASED [None]
  - MULTI-ORGAN FAILURE [None]
  - OXYGEN SATURATION DECREASED [None]
  - PNEUMONIA [None]
  - RENAL FAILURE ACUTE [None]
  - WHITE BLOOD CELL COUNT INCREASED [None]
